FAERS Safety Report 5318300-X (Version None)
Quarter: 2007Q2

REPORT INFORMATION
  Report Type: 
  Country: None (occurrence: None)
  Receive Date: 20070507
  Receipt Date: 20070426
  Transmission Date: 20071010
  Serious: Yes (Other)
  Sender: FDA-Public Use
  Company Number: FR-PFIZER INC-2007034138

PATIENT
  Age: 40 Year
  Sex: Male

DRUGS (1)
  1. TAHOR [Suspect]
     Indication: TYPE IIA HYPERLIPIDAEMIA

REACTIONS (3)
  - FALL [None]
  - MUSCLE RUPTURE [None]
  - MYALGIA [None]
